FAERS Safety Report 7046017-2 (Version None)
Quarter: 2010Q4

REPORT INFORMATION
  Report Type: 
  Country: None (occurrence: None)
  Receive Date: 20101014
  Receipt Date: 20101008
  Transmission Date: 20110411
  Serious: Yes (Hospitalization)
  Sender: FDA-Public Use
  Company Number: FR-SANOFI-AVENTIS-2010SA061046

PATIENT
  Age: 68 Year
  Sex: Male

DRUGS (7)
  1. PLAVIX [Suspect]
     Indication: PRODUCT USED FOR UNKNOWN INDICATION
     Route: 048
     Dates: end: 20100707
  2. COUMADIN [Suspect]
     Indication: PRODUCT USED FOR UNKNOWN INDICATION
     Route: 048
     Dates: end: 20100707
  3. ASPEGIC 1000 [Concomitant]
     Indication: PRODUCT USED FOR UNKNOWN INDICATION
  4. CORDARONE [Concomitant]
     Indication: PRODUCT USED FOR UNKNOWN INDICATION
  5. RAMIPRIL [Concomitant]
     Indication: PRODUCT USED FOR UNKNOWN INDICATION
  6. FLUTICASONE PROPIONATE/SALMETEROL [Concomitant]
     Indication: PRODUCT USED FOR UNKNOWN INDICATION
  7. GLICLAZIDE [Concomitant]
     Indication: PRODUCT USED FOR UNKNOWN INDICATION

REACTIONS (4)
  - HAEMATOMA [None]
  - HAEMOPTYSIS [None]
  - HYPOPROTHROMBINAEMIA [None]
  - INTERNATIONAL NORMALISED RATIO INCREASED [None]
